FAERS Safety Report 14660319 (Version 2)
Quarter: 2018Q1

REPORT INFORMATION
  Report Type: Spontaneous
  Country: VE (occurrence: VE)
  Receive Date: 20180320
  Receipt Date: 20180330
  Transmission Date: 20180509
  Serious: Yes (Other)
  Sender: FDA-Public Use
  Company Number: PHHY2018VE044305

PATIENT
  Age: 51 Year
  Sex: Female

DRUGS (2)
  1. NITROFURANTOIN. [Concomitant]
     Active Substance: NITROFURANTOIN
     Indication: ESCHERICHIA INFECTION
     Dosage: 100 MG, Q12H
     Route: 048
  2. DICLOFENAC SODIUM. [Suspect]
     Active Substance: DICLOFENAC SODIUM
     Indication: PAIN
     Dosage: UNK
     Route: 030
     Dates: start: 20170328

REACTIONS (5)
  - Injection site abscess [Recovered/Resolved]
  - Injection site ulcer [Unknown]
  - Injection site induration [Unknown]
  - Injection site discolouration [Unknown]
  - Injection site pain [Unknown]
